FAERS Safety Report 6829463-9 (Version None)
Quarter: 2010Q3

REPORT INFORMATION
  Report Type: 
  Country: None (occurrence: None)
  Receive Date: 20100709
  Receipt Date: 20070308
  Transmission Date: 20110219
  Serious: No
  Sender: FDA-Public Use
  Company Number: US-PFIZER INC-2007019457

PATIENT
  Sex: Female
  Weight: 90.72 kg

DRUGS (7)
  1. CHANTIX [Suspect]
     Indication: SMOKING CESSATION THERAPY
     Dates: start: 20070305
  2. CRESTOR [Concomitant]
  3. CIPROFLOXACIN [Concomitant]
  4. GLIPIZIDE [Concomitant]
  5. ZYRTEC [Concomitant]
  6. AVANDIA [Concomitant]
  7. METFORMIN HCL [Concomitant]

REACTIONS (3)
  - AVERSION [None]
  - DECREASED APPETITE [None]
  - VOMITING [None]
